FAERS Safety Report 24889764 (Version 1)
Quarter: 2025Q1

REPORT INFORMATION
  Report Type: Spontaneous
  Country: PT (occurrence: PT)
  Receive Date: 20250127
  Receipt Date: 20250127
  Transmission Date: 20250409
  Serious: Yes (Hospitalization, Other)
  Sender: EPIC PHARM
  Company Number: PT-EPICPHARMA-PT-2025EPCLIT00026

PATIENT
  Age: 53 Year
  Sex: Male

DRUGS (6)
  1. CARBOPLATIN [Suspect]
     Active Substance: CARBOPLATIN
     Indication: Squamous cell carcinoma of lung
     Route: 065
  2. VINORELBINE [Concomitant]
     Active Substance: VINORELBINE TARTRATE
     Route: 065
  3. VANCOMYCIN [Concomitant]
     Active Substance: VANCOMYCIN
     Indication: Evidence based treatment
     Route: 065
  4. PIPERACILLIN AND TAZOBACTAM [Concomitant]
     Active Substance: PIPERACILLIN SODIUM\TAZOBACTAM SODIUM
     Indication: Evidence based treatment
     Route: 065
  5. FLUCLOXACILLIN [Concomitant]
     Active Substance: FLUCLOXACILLIN
     Indication: Evidence based treatment
     Route: 065
  6. CEFTAZIDIME [Concomitant]
     Active Substance: CEFTAZIDIME
     Indication: Evidence based treatment
     Route: 065

REACTIONS (2)
  - Cutaneous vasculitis [Unknown]
  - Product use in unapproved indication [Unknown]
